FAERS Safety Report 13568551 (Version 1)
Quarter: 2017Q2

REPORT INFORMATION
  Report Type: Spontaneous
  Country: US (occurrence: US)
  Receive Date: 20170522
  Receipt Date: 20170522
  Transmission Date: 20170830
  Serious: Yes (Other)
  Sender: FDA-Public Use
  Company Number: None

PATIENT
  Age: 68 Year
  Sex: Female
  Weight: 68.4 kg

DRUGS (3)
  1. ILEVRO [Suspect]
     Active Substance: NEPAFENAC
     Indication: CATARACT OPERATION
     Dosage: ?          OTHER STRENGTH:DROP;QUANTITY:1 DROP(S);?
     Route: 047
  2. MULTIPLE VITAMINS [Concomitant]
     Active Substance: VITAMINS
  3. SYNTHROID [Concomitant]
     Active Substance: LEVOTHYROXINE SODIUM

REACTIONS (2)
  - Abnormal sensation in eye [None]
  - Visual impairment [None]

NARRATIVE: CASE EVENT DATE: 20170515
